FAERS Safety Report 25600644 (Version 1)
Quarter: 2025Q3

REPORT INFORMATION
  Report Type: Spontaneous
  Country: UA (occurrence: UA)
  Receive Date: 20250724
  Receipt Date: 20250724
  Transmission Date: 20251021
  Serious: Yes (Death)
  Sender: MYLAN
  Company Number: UA-MYLANLABS-2025M1062508

PATIENT
  Age: 46 Year
  Sex: Male

DRUGS (4)
  1. PRETOMANID [Suspect]
     Active Substance: PRETOMANID
     Indication: Disseminated tuberculosis
     Dosage: 0.2 GRAM, QD (0.2 GRAM 1/1 DAY)
     Dates: start: 20250326, end: 20250620
  2. PRETOMANID [Suspect]
     Active Substance: PRETOMANID
     Indication: Tuberculosis
  3. BEDAQUILINE [Suspect]
     Active Substance: BEDAQUILINE
     Indication: Tuberculosis
     Dosage: 0.2 GRAM, 3XW (0.2 GRAM 3/1 WEEK)
     Dates: start: 20250326, end: 20250620
  4. BEDAQUILINE [Suspect]
     Active Substance: BEDAQUILINE
     Indication: Disseminated tuberculosis

REACTIONS (1)
  - Death [Fatal]

NARRATIVE: CASE EVENT DATE: 20250620
